FAERS Safety Report 18655875 (Version 2)
Quarter: 2021Q1

REPORT INFORMATION
  Report Type: Spontaneous
  Country: IT (occurrence: IT)
  Receive Date: 20201223
  Receipt Date: 20210312
  Transmission Date: 20210419
  Serious: Yes (Other)
  Sender: FDA-Public Use
  Company Number: IT-SAMSUNG BIOEPIS-SB-2020-37650

PATIENT
  Age: 43 Year
  Sex: Female
  Weight: 56 kg

DRUGS (2)
  1. FLIXABI [Suspect]
     Active Substance: INFLIXIMAB
     Indication: COGAN^S SYNDROME
     Route: 042
     Dates: start: 20190901, end: 20200227
  2. REUMAFLEX [Concomitant]
     Indication: COGAN^S SYNDROME
     Route: 058
     Dates: start: 20060101, end: 20200622

REACTIONS (3)
  - Product use in unapproved indication [Unknown]
  - Drug ineffective [Not Recovered/Not Resolved]
  - Neurosensory hypoacusis [Not Recovered/Not Resolved]

NARRATIVE: CASE EVENT DATE: 20200601
